FAERS Safety Report 8400859-7 (Version None)
Quarter: 2012Q2

REPORT INFORMATION
  Report Type: 
  Country: None (occurrence: None)
  Receive Date: 20120601
  Receipt Date: 20100630
  Transmission Date: 20120825
  Serious: Yes (Hospitalization, Other)
  Sender: FDA-Public Use
  Company Number: JP-BRISTOL-MYERS SQUIBB COMPANY-16526048

PATIENT

DRUGS (1)
  1. ABILIFY [Suspect]
     Route: 065

REACTIONS (4)
  - NEUROLEPTIC MALIGNANT SYNDROME [None]
  - SEROTONIN SYNDROME [None]
  - PYREXIA [None]
  - ALTERED STATE OF CONSCIOUSNESS [None]
